FAERS Safety Report 9815820 (Version 3)
Quarter: 2014Q1

REPORT INFORMATION
  Report Type: Spontaneous
  Country: US (occurrence: US)
  Receive Date: 20140114
  Receipt Date: 20140205
  Transmission Date: 20141002
  Serious: Yes (Other)
  Sender: FDA-Public Use
  Company Number: US-ASTELLAS-2014US000265

PATIENT
  Age: 78 Year
  Sex: Male

DRUGS (3)
  1. XTANDI [Suspect]
     Indication: PROSTATE CANCER
     Dosage: 160 MG, UNKNOWN/D
     Route: 048
     Dates: start: 20131003, end: 20131219
  2. DUREZOL [Concomitant]
     Indication: PRODUCT USED FOR UNKNOWN INDICATION
     Dosage: UNK
     Route: 047
  3. NEVANAC [Concomitant]
     Indication: PRODUCT USED FOR UNKNOWN INDICATION
     Dosage: UNK
     Route: 047

REACTIONS (9)
  - Hearing impaired [Unknown]
  - Cataract [Unknown]
  - Visual acuity reduced [Unknown]
  - Vomiting [Unknown]
  - Nausea [Unknown]
  - Blood urine present [Unknown]
  - Abdominal pain [Unknown]
  - Pain in extremity [Unknown]
  - Prostatic specific antigen increased [Unknown]
